FAERS Safety Report 4327473-7 (Version None)
Quarter: 2004Q1

REPORT INFORMATION
  Report Type: 
  Country: None (occurrence: None)
  Receive Date: 20040325
  Receipt Date: 20040130
  Transmission Date: 20041129
  Serious: Yes (Death)
  Sender: FDA-Public Use
  Company Number: F01200400167

PATIENT
  Age: 64 Year
  Sex: Male

DRUGS (10)
  1. ARIXTRA [Suspect]
     Indication: HIP FRACTURE
     Dosage: 2.5 MG SUBCUTANEOUS
     Route: 058
     Dates: start: 20040128, end: 20040128
  2. ARIXTRA [Suspect]
     Indication: HIP SURGERY
     Dosage: 2.5 MG SUBCUTANEOUS
     Route: 058
     Dates: start: 20040128, end: 20040128
  3. ARIXTRA [Suspect]
     Indication: THROMBOSIS PROPHYLAXIS
     Dosage: 2.5 MG SUBCUTANEOUS
     Route: 058
     Dates: start: 20040128, end: 20040128
  4. ASPIRIN [Concomitant]
  5. METFORMIN HCL [Concomitant]
  6. GLYBURIDE [Concomitant]
  7. METOPROLOL [Concomitant]
  8. ISOSRBIDE DINITRATE [Concomitant]
  9. DICLOFENAC SODIUM [Concomitant]
  10. CALCIUM LACTATE [Concomitant]

REACTIONS (3)
  - CARDIO-RESPIRATORY ARREST [None]
  - OVERDOSE [None]
  - UPPER GASTROINTESTINAL HAEMORRHAGE [None]
